FAERS Safety Report 4951722-5 (Version None)
Quarter: 2006Q1

REPORT INFORMATION
  Report Type: 
  Country: None (occurrence: None)
  Receive Date: 20060322
  Receipt Date: 20060322
  Transmission Date: 20060701
  Serious: Yes (Other)
  Sender: FDA-Public Use
  Company Number: None

PATIENT
  Age: 25 Year
  Sex: Female
  Weight: 51.2565 kg

DRUGS (2)
  1. ORTHO TRI-CYCLEN [Suspect]
     Indication: CONTRACEPTION
     Dosage: 1 PILL ONCE A DAY PO
     Route: 048
     Dates: start: 19971013, end: 20060226
  2. ORTHO TRI-CYCLEN [Suspect]
     Indication: MENSTRUATION IRREGULAR
     Dosage: 1 PILL ONCE A DAY PO
     Route: 048
     Dates: start: 19971013, end: 20060226

REACTIONS (20)
  - ABDOMINAL PAIN [None]
  - AGGRESSION [None]
  - AMENORRHOEA [None]
  - ANXIETY [None]
  - BLOOD GLUCOSE DECREASED [None]
  - CRYING [None]
  - DIZZINESS [None]
  - DRUG WITHDRAWAL SYNDROME [None]
  - DRY MOUTH [None]
  - FATIGUE [None]
  - FEELING JITTERY [None]
  - GASTROINTESTINAL DISORDER [None]
  - HEADACHE [None]
  - LOSS OF LIBIDO [None]
  - MIGRAINE [None]
  - NAUSEA [None]
  - NEPHROLITHIASIS [None]
  - PALPITATIONS [None]
  - PANIC ATTACK [None]
  - SOCIAL PHOBIA [None]
